FAERS Safety Report 4454544-7 (Version None)
Quarter: 2004Q3

REPORT INFORMATION
  Report Type: 
  Country: None (occurrence: None)
  Receive Date: 20040823
  Receipt Date: 20040525
  Transmission Date: 20050211
  Serious: Yes (Hospitalization)
  Sender: FDA-Public Use
  Company Number: CIP04001087

PATIENT
  Sex: Male

DRUGS (2)
  1. ASACOL [Suspect]
     Indication: COLITIS ULCERATIVE
     Dosage: ORAL : 400 MG DAILY, ORAL : 4 MG , TWICE DAILY, ORAL
     Route: 048
     Dates: start: 20040101, end: 20040101
  2. ASACOL [Suspect]
     Indication: COLITIS ULCERATIVE
     Dosage: ORAL : 400 MG DAILY, ORAL : 4 MG , TWICE DAILY, ORAL
     Route: 048
     Dates: start: 20040101, end: 20040101

REACTIONS (2)
  - NIGHT SWEATS [None]
  - PYREXIA [None]
